FAERS Safety Report 8403654 (Version 5)
Quarter: 2013Q4

REPORT INFORMATION
  Report Type: Report from Study
  Country: JP (occurrence: JP)
  Receive Date: 20120213
  Receipt Date: 20131116
  Transmission Date: 20140711
  Serious: Yes (Other)
  Sender: FDA-Public Use
  Company Number: PHHY2012JP009540

PATIENT
  Sex: Male

DRUGS (1)
  1. LEPONEX / CLOZARIL [Suspect]
     Indication: SCHIZOPHRENIA
     Route: 048
     Dates: start: 20110415

REACTIONS (8)
  - Prostatic disorder [Unknown]
  - Pollakiuria [Unknown]
  - Urinary incontinence [Unknown]
  - Delusion [Unknown]
  - Blood glucose abnormal [Unknown]
  - Speech disorder [Unknown]
  - Somnolence [Unknown]
  - Diarrhoea [Unknown]
